FAERS Safety Report 24379433 (Version 1)
Quarter: 2024Q3

REPORT INFORMATION
  Report Type: Report from Study
  Country: US (occurrence: US)
  Receive Date: 20240930
  Receipt Date: 20240930
  Transmission Date: 20241016
  Serious: Yes (Hospitalization, Other)
  Sender: EXELIXIS
  Company Number: US-EXELIXIS-EXL-2024-000573

PATIENT
  Age: 21 Year
  Sex: Male
  Weight: 55.4 kg

DRUGS (2)
  1. CABOMETYX [Suspect]
     Active Substance: CABOZANTINIB S-MALATE
     Indication: Bone cancer
     Dosage: 40 MG, QD
     Route: 048
     Dates: start: 20240613, end: 20240924
  2. LEVOTHYROXINE [Concomitant]
     Active Substance: LEVOTHYROXINE\LEVOTHYROXINE SODIUM
     Dosage: 100 MG

REACTIONS (3)
  - Pleural effusion [Unknown]
  - Hypothyroidism [Unknown]
  - Off label use [Unknown]

NARRATIVE: CASE EVENT DATE: 20240825
